FAERS Safety Report 23180253 (Version 1)
Quarter: 2023Q4

REPORT INFORMATION
  Report Type: Spontaneous
  Country: US (occurrence: US)
  Receive Date: 20231114
  Receipt Date: 20231114
  Transmission Date: 20240110
  Serious: Yes (Hospitalization, Other)
  Sender: FDA-Public Use
  Company Number: US-IBIGEN-2023-014232

PATIENT
  Age: 58 Year
  Sex: Female

DRUGS (13)
  1. PIPERACILLIN SODIUM\TAZOBACTAM SODIUM [Suspect]
     Active Substance: PIPERACILLIN SODIUM\TAZOBACTAM SODIUM
     Indication: Pneumonia aspiration
     Dosage: ()
     Route: 040
  2. VANCOMYCIN [Suspect]
     Active Substance: VANCOMYCIN
     Indication: Pneumonia aspiration
     Dosage: ()
     Route: 040
  3. ASPIRIN [Suspect]
     Active Substance: ASPIRIN
  4. ATORVASTATIN [Suspect]
     Active Substance: ATORVASTATIN
  5. CLOPIDOGREL [Suspect]
     Active Substance: CLOPIDOGREL BISULFATE
  6. PANTOPRAZOLE [Suspect]
     Active Substance: PANTOPRAZOLE
  7. PROPOFOL [Suspect]
     Active Substance: PROPOFOL
  8. VALPROATE [Suspect]
     Active Substance: VALPROIC ACID
  9. LEVETIRACETAM [Suspect]
     Active Substance: LEVETIRACETAM
  10. METOPROLOL [Suspect]
     Active Substance: METOPROLOL
  11. CEFTRIAXONE [Suspect]
     Active Substance: CEFTRIAXONE\CEFTRIAXONE SODIUM
  12. AMOXICILLIN\CLAVULANIC ACID [Suspect]
     Active Substance: AMOXICILLIN\CLAVULANIC ACID
  13. CEFEPIME [Suspect]
     Active Substance: CEFEPIME HYDROCHLORIDE

REACTIONS (6)
  - Rash [Recovered/Resolved]
  - Blister [Recovered/Resolved]
  - Nikolsky^s sign [Recovered/Resolved]
  - Mucosal erosion [Recovered/Resolved]
  - Erythema [Recovered/Resolved]
  - Linear IgA disease [Recovered/Resolved]
